FAERS Safety Report 21728559 (Version 1)
Quarter: 2022Q4

REPORT INFORMATION
  Report Type: Report from Study
  Country: US (occurrence: US)
  Receive Date: 20221214
  Receipt Date: 20221214
  Transmission Date: 20230113
  Serious: Yes (Other)
  Sender: FDA-Public Use
  Company Number: US-BRISTOL-MYERS SQUIBB COMPANY-2022-149164

PATIENT
  Age: 46 Year
  Sex: Male
  Weight: 91.22 kg

DRUGS (13)
  1. REVLIMID [Suspect]
     Active Substance: LENALIDOMIDE
     Indication: Plasma cell myeloma
     Dosage: TAKE 1 CAPSULE DAILY FOR 21 DAYS ON AND 7 DAYS OFF. DO NOT BREAK, CHEW, OR OPEN CAPSULES
     Route: 048
     Dates: start: 202203
  2. KETOCONAZOLE [Concomitant]
     Active Substance: KETOCONAZOLE
  3. PROCHLORPERAZINE MALEATE [Concomitant]
     Active Substance: PROCHLORPERAZINE MALEATE
  4. DEXAMETHASONE [Concomitant]
     Active Substance: DEXAMETHASONE
  5. DARZALEX [Concomitant]
     Active Substance: DARATUMUMAB
     Dosage: 100 MG/5ML VIAL
  6. VELCADE [Concomitant]
     Active Substance: BORTEZOMIB
     Dosage: 3.5 MG VIAL
  7. ROSUVASTATIN CALCIUM [Concomitant]
     Active Substance: ROSUVASTATIN CALCIUM
  8. VALACYCLOVIR [Concomitant]
     Active Substance: VALACYCLOVIR HYDROCHLORIDE
  9. ONDANSETRON HCL [Concomitant]
     Active Substance: ONDANSETRON HYDROCHLORIDE
  10. ACETAMINOPHEN\HYDROCODONE [Concomitant]
     Active Substance: ACETAMINOPHEN\HYDROCODONE
  11. CYCLOBENZAPRINE HYDROCHLORIDE [Concomitant]
     Active Substance: CYCLOBENZAPRINE HYDROCHLORIDE
  12. TYLENOL EXTRA STRENGTH [Concomitant]
     Active Substance: ACETAMINOPHEN
  13. OMEPRAZOLE [Concomitant]
     Active Substance: OMEPRAZOLE

REACTIONS (1)
  - Spinal fracture [Unknown]
